FAERS Safety Report 20935698 (Version 1)
Quarter: 2022Q2

REPORT INFORMATION
  Report Type: Spontaneous
  Country: US (occurrence: None)
  Receive Date: 20220609
  Receipt Date: 20220609
  Transmission Date: 20220721
  Serious: No
  Sender: FDA-Public Use
  Company Number: US-ROCHE-2815938

PATIENT
  Age: 71 Year
  Sex: Female
  Weight: 78.996 kg

DRUGS (11)
  1. ACTEMRA [Suspect]
     Active Substance: TOCILIZUMAB
     Indication: Giant cell arteritis
     Route: 058
     Dates: start: 20201201
  2. ACTEMRA [Suspect]
     Active Substance: TOCILIZUMAB
  3. ACTEMRA [Suspect]
     Active Substance: TOCILIZUMAB
  4. PREDNISONE [Concomitant]
     Active Substance: PREDNISONE
     Indication: Giant cell arteritis
     Route: 048
     Dates: start: 202004
  5. HYDROCHLOROTHIAZIDE [Concomitant]
     Active Substance: HYDROCHLOROTHIAZIDE
     Indication: Hypertension
     Route: 048
  6. SYNTHROID [Concomitant]
     Active Substance: LEVOTHYROXINE SODIUM
     Indication: Hypothyroidism
     Route: 048
  7. TELMISARTAN [Concomitant]
     Active Substance: TELMISARTAN
     Indication: Hypertension
     Route: 048
     Dates: end: 20210417
  8. TELMISARTAN [Concomitant]
     Active Substance: TELMISARTAN
     Route: 048
     Dates: start: 20210418
  9. SIMBRINZA [Concomitant]
     Active Substance: BRIMONIDINE TARTRATE\BRINZOLAMIDE
     Indication: Ocular hypertension
     Dosage: ONE DROP IN BOTH EYES TWICE DAILY
     Route: 047
     Dates: start: 202012
  10. ALPHAGAN P [Concomitant]
     Active Substance: BRIMONIDINE TARTRATE
     Indication: Ocular hypertension
     Dosage: ONE DROP IN BOTH EYES TWICE DAILY
     Route: 047
     Dates: start: 202012
  11. FOSAMAX [Concomitant]
     Active Substance: ALENDRONATE SODIUM
     Indication: Osteopenia
     Route: 048

REACTIONS (3)
  - Injection site reaction [Recovering/Resolving]
  - Hypotension [Unknown]
  - Dizziness [Unknown]

NARRATIVE: CASE EVENT DATE: 20210330
